FAERS Safety Report 7965479-7 (Version None)
Quarter: 2011Q4

REPORT INFORMATION
  Report Type: 
  Country: None (occurrence: None)
  Receive Date: 20111208
  Receipt Date: 20111125
  Transmission Date: 20120403
  Serious: Yes (Death, Hospitalization, Other)
  Sender: FDA-Public Use
  Company Number: FR-ALLERGAN-1115705US

PATIENT
  Sex: Male

DRUGS (1)
  1. TROSPIUM CHLORIDE [Suspect]
     Indication: PRODUCT USED FOR UNKNOWN INDICATION
     Dosage: UNK
     Route: 048
     Dates: start: 20110904

REACTIONS (2)
  - ASTHENIA [None]
  - DISORIENTATION [None]
